FAERS Safety Report 14934519 (Version 1)
Quarter: 2018Q2

REPORT INFORMATION
  Report Type: Report from Study
  Country: UG (occurrence: UG)
  Receive Date: 20180524
  Receipt Date: 20180524
  Transmission Date: 20180711
  Serious: Yes (Hospitalization, Other)
  Sender: FDA-Public Use
  Company Number: UG-VIIV HEALTHCARE LIMITED-UG2018GSK091112

PATIENT
  Age: 8 Year
  Sex: Female
  Weight: 20.8 kg

DRUGS (4)
  1. COTRIMOXAZOLE [Concomitant]
     Active Substance: SULFAMETHOXAZOLE\TRIMETHOPRIM
     Dosage: UNK
     Dates: start: 20110922
  2. ABACAVIR SULPHATE [Suspect]
     Active Substance: ABACAVIR
     Indication: HIV INFECTION
     Dosage: UNK
     Route: 048
  3. DOLUTEGRAVIR [Suspect]
     Active Substance: DOLUTEGRAVIR
     Indication: HIV INFECTION
     Dosage: UNK
     Route: 048
  4. LAMIVUDINE. [Suspect]
     Active Substance: LAMIVUDINE
     Indication: HIV INFECTION
     Dosage: UNK
     Route: 048

REACTIONS (1)
  - Measles [Recovered/Resolved]

NARRATIVE: CASE EVENT DATE: 20180511
